FAERS Safety Report 8909873 (Version 1)
Quarter: 2012Q4

REPORT INFORMATION
  Report Type: 
  Country: VE (occurrence: VE)
  Receive Date: 20121115
  Receipt Date: 20121115
  Transmission Date: 20130627
  Serious: Yes (Death, Hospitalization)
  Sender: FDA-Public Use
  Company Number: VE-ROCHE-1154509

PATIENT
  Age: 54 Year
  Sex: Male

DRUGS (3)
  1. XOLAIR [Suspect]
     Indication: HYPERSENSITIVITY
     Route: 058
     Dates: start: 201005, end: 201111
  2. SPIRIVA [Concomitant]
  3. BERODUAL [Concomitant]
     Route: 065

REACTIONS (2)
  - Respiratory arrest [Fatal]
  - Chronic obstructive pulmonary disease [Unknown]
